FAERS Safety Report 7599723-5 (Version None)
Quarter: 2011Q2

REPORT INFORMATION
  Report Type: 
  Country: None (occurrence: None)
  Receive Date: 20110629
  Receipt Date: 20110616
  Transmission Date: 20111010
  Serious: Yes (Death, Life-Threatening, Hospitalization, Disabling, Other)
  Sender: FDA-Public Use
  Company Number: FK201101230

PATIENT
  Age: 67 Year
  Sex: Female

DRUGS (2)
  1. CLOZARIL [Suspect]
     Indication: SCHIZOPHRENIA
     Route: 048
     Dates: start: 19960229
  2. EPIRUBICIN [Suspect]
     Indication: BREAST CANCER

REACTIONS (16)
  - FLUID RETENTION [None]
  - RENAL DISORDER [None]
  - PLEURAL EFFUSION [None]
  - METASTASES TO LIVER [None]
  - LYMPHOCYTE COUNT DECREASED [None]
  - NEUTROPHIL COUNT DECREASED [None]
  - URINARY TRACT OBSTRUCTION [None]
  - STAPHYLOCOCCAL INFECTION [None]
  - EOSINOPHIL COUNT DECREASED [None]
  - WOUND INFECTION STAPHYLOCOCCAL [None]
  - PAIN [None]
  - URINARY RETENTION [None]
  - BONE MARROW DISORDER [None]
  - BREAST CANCER [None]
  - PANCYTOPENIA [None]
  - VOMITING [None]
